FAERS Safety Report 23130412 (Version 1)
Quarter: 2023Q4

REPORT INFORMATION
  Report Type: Spontaneous
  Country: US (occurrence: None)
  Receive Date: 20231030
  Receipt Date: 20231030
  Transmission Date: 20240110
  Serious: Yes (Other)
  Sender: FDA-Public Use
  Company Number: None

PATIENT
  Age: 63 Year
  Sex: Female
  Weight: 58.5 kg

DRUGS (10)
  1. LUBRICANT DROPS (POLYETHYLENE GLYCOL 400\PROPYLENE GLYCOL) [Suspect]
     Active Substance: POLYETHYLENE GLYCOL 400\PROPYLENE GLYCOL
     Indication: Dry eye
     Dosage: FREQUENCY : AS NEEDED;?
     Route: 047
     Dates: start: 20230608, end: 20231019
  2. GABAPENTIN [Concomitant]
     Active Substance: GABAPENTIN
  3. MOBIC [Concomitant]
     Active Substance: MELOXICAM
  4. WELLBUTRIN [Concomitant]
     Active Substance: BUPROPION HYDROCHLORIDE
  5. TRAZODONE [Concomitant]
     Active Substance: TRAZODONE HYDROCHLORIDE
  6. ALBUTEROL [Concomitant]
     Active Substance: ALBUTEROL
  7. ALVESCO [Concomitant]
     Active Substance: CICLESONIDE
  8. VITAMINS [Concomitant]
     Active Substance: VITAMINS
  9. MUCUS RELIEF [Concomitant]
     Active Substance: GUAIFENESIN
  10. TYLENOL [Concomitant]
     Active Substance: ACETAMINOPHEN

REACTIONS (1)
  - Eye infection [None]

NARRATIVE: CASE EVENT DATE: 20230618
